FAERS Safety Report 24343161 (Version 1)
Quarter: 2024Q3

REPORT INFORMATION
  Report Type: Spontaneous
  Country: US (occurrence: US)
  Receive Date: 20240920
  Receipt Date: 20240920
  Transmission Date: 20241017
  Serious: No
  Sender: MYLAN
  Company Number: US-MYLANLABS-2024M1083102

PATIENT
  Sex: Female
  Weight: 90.72 kg

DRUGS (1)
  1. ESTRADIOL TRANSDERMAL SYSTEM [Suspect]
     Active Substance: ESTRADIOL
     Indication: Hot flush
     Dosage: 0.0375 MILLIGRAM, QD (TWICE WEEKLY)
     Route: 062

REACTIONS (1)
  - Rash [Not Recovered/Not Resolved]
